FAERS Safety Report 20987953 (Version 1)
Quarter: 2022Q2

REPORT INFORMATION
  Report Type: Spontaneous
  Country: BR (occurrence: None)
  Receive Date: 20220621
  Receipt Date: 20220621
  Transmission Date: 20220721
  Serious: Yes (Other)
  Sender: FDA-Public Use
  Company Number: BR-ROCHE-3114571

PATIENT
  Sex: Female
  Weight: 64 kg

DRUGS (7)
  1. TOCILIZUMAB [Suspect]
     Active Substance: TOCILIZUMAB
     Indication: Polyarthritis
     Route: 042
     Dates: start: 20200313, end: 20200313
  2. PREDNISONE [Concomitant]
     Active Substance: PREDNISONE
  3. DIPYRONE [Concomitant]
     Active Substance: DIPYRONE
  4. VITAMIN D3 [Concomitant]
     Active Substance: CHOLECALCIFEROL
  5. OMEPRAZOLE [Concomitant]
     Active Substance: OMEPRAZOLE
  6. HYPROMELLOSES [Concomitant]
     Active Substance: HYPROMELLOSES
  7. ACETYLCYSTEINE [Concomitant]
     Active Substance: ACETYLCYSTEINE

REACTIONS (6)
  - Oedema [Recovered/Resolved]
  - Vision blurred [Recovered/Resolved]
  - Hyperaemia [Recovered/Resolved]
  - Blood pressure increased [Recovered/Resolved]
  - Pruritus [Recovered/Resolved]
  - Tremor [Recovered/Resolved]

NARRATIVE: CASE EVENT DATE: 20200313
